FAERS Safety Report 4359343-2 (Version None)
Quarter: 2004Q2

REPORT INFORMATION
  Report Type: 
  Country: None (occurrence: None)
  Receive Date: 20040512
  Receipt Date: 20040430
  Transmission Date: 20050107
  Serious: Yes (Hospitalization, Other)
  Sender: FDA-Public Use
  Company Number: EM2003-0331

PATIENT
  Age: 45 Year
  Sex: Female

DRUGS (3)
  1. PROLEUKIN; CHIRON CORPORATION (ALDESLEUKIN) INJECTION [Suspect]
     Indication: MALIGNANT MELANOMA
     Dosage: 9 MIU/M2, BID, DI-2, WKS 1+3, SUBCUTAN
     Route: 058
     Dates: start: 20030908, end: 20031002
  2. PROLEUKIN; CHIRON CORPORATION (ALDESLEUKIN) INJECTION [Suspect]
     Indication: MALIGNANT MELANOMA
     Dosage: 9 MIU/M2, BID, DI-2, WKS 1+3, SUBCUTAN
     Route: 058
     Dates: start: 20030908, end: 20031002
  3. . [Concomitant]

REACTIONS (7)
  - ANOREXIA [None]
  - CONVULSION [None]
  - HYPERTHYROIDISM [None]
  - MALIGNANT NEOPLASM PROGRESSION [None]
  - METASTASES TO CENTRAL NERVOUS SYSTEM [None]
  - NAUSEA [None]
  - VOMITING [None]
